FAERS Safety Report 9055759 (Version 1)
Quarter: 2013Q1

REPORT INFORMATION
  Report Type: Spontaneous
  Country: CA (occurrence: CA)
  Receive Date: 20130206
  Receipt Date: 20130206
  Transmission Date: 20140127
  Serious: Yes (Other)
  Sender: FDA-Public Use
  Company Number: CA-BAYER-2013-012537

PATIENT
  Age: 64 Year
  Sex: Female

DRUGS (1)
  1. BETASERON [Suspect]
     Indication: RELAPSING-REMITTING MULTIPLE SCLEROSIS
     Dosage: UNK
     Route: 058
     Dates: start: 2008, end: 201208

REACTIONS (8)
  - Drug specific antibody present [None]
  - Blindness [Recovered/Resolved with Sequelae]
  - Aphagia [Recovered/Resolved with Sequelae]
  - Abasia [Recovered/Resolved with Sequelae]
  - Polycythaemia [None]
  - Iron deficiency [None]
  - Central nervous system lesion [None]
  - Multiple sclerosis [Recovered/Resolved with Sequelae]
